FAERS Safety Report 21731956 (Version 1)
Quarter: 2022Q4

REPORT INFORMATION
  Report Type: Spontaneous
  Country: RO (occurrence: RO)
  Receive Date: 20221215
  Receipt Date: 20221215
  Transmission Date: 20230113
  Serious: Yes (Life-Threatening, Hospitalization, Other)
  Sender: FDA-Public Use
  Company Number: RO-ALXN-A202215469

PATIENT
  Age: 6 Year
  Sex: Female

DRUGS (4)
  1. SOLIRIS [Suspect]
     Active Substance: ECULIZUMAB
     Indication: Atypical haemolytic uraemic syndrome
     Dosage: UNK
     Route: 065
  2. ENTRESTO [Concomitant]
     Active Substance: SACUBITRIL\VALSARTAN
     Indication: Hypertension
     Dosage: UNK
     Route: 065
  3. METOPROLOL [Concomitant]
     Active Substance: METOPROLOL
     Indication: Hypertension
     Dosage: UNK
     Route: 065
  4. VALSARTAN [Concomitant]
     Active Substance: VALSARTAN
     Indication: Hypertension
     Dosage: UNK
     Route: 065

REACTIONS (17)
  - Sepsis [Unknown]
  - Malignant hypertension [Unknown]
  - Pulmonary oedema [Unknown]
  - Phlebitis [Unknown]
  - Staphylococcal infection [Unknown]
  - Haemoperitoneum [Unknown]
  - Anuria [Unknown]
  - Blood lactate dehydrogenase increased [Unknown]
  - Pallor [Unknown]
  - Oliguria [Unknown]
  - Accident [Unknown]
  - Hyponatraemia [Unknown]
  - Hypochloraemia [Unknown]
  - Hypoalbuminaemia [Unknown]
  - Insomnia [Unknown]
  - Pruritus [Unknown]
  - Anaemia [Unknown]
